FAERS Safety Report 9846132 (Version 2)
Quarter: 2014Q3

REPORT INFORMATION
  Report Type: Spontaneous
  Country: US (occurrence: US)
  Receive Date: 20140127
  Receipt Date: 20140722
  Transmission Date: 20150326
  Serious: Yes (Hospitalization, Other)
  Sender: FDA-Public Use
  Company Number: US-009507513-1401USA010232

PATIENT
  Sex: Female
  Weight: 88.16 kg

DRUGS (1)
  1. NUVARING [Suspect]
     Active Substance: ETHINYL ESTRADIOL\ETONOGESTREL
     Indication: CONTRACEPTION
     Dosage: Q3W, REMOVE 1 WK, REPEAT
     Route: 067
     Dates: start: 200609

REACTIONS (12)
  - Antiphospholipid antibodies positive [Unknown]
  - Nasopharyngitis [Unknown]
  - Pericardial effusion [Unknown]
  - Deep vein thrombosis [Unknown]
  - Pyelonephritis [Unknown]
  - Pulmonary embolism [Recovering/Resolving]
  - Anxiety [Unknown]
  - Anticoagulation drug level below therapeutic [Unknown]
  - Inguinal hernia repair [Unknown]
  - Pulmonary calcification [Unknown]
  - Psoriasis [Unknown]
  - Abdominal pain lower [Unknown]

NARRATIVE: CASE EVENT DATE: 20061122
